FAERS Safety Report 20626813 (Version 1)
Quarter: 2022Q1

REPORT INFORMATION
  Report Type: Spontaneous
  Country: US (occurrence: US)
  Receive Date: 20220323
  Receipt Date: 20220323
  Transmission Date: 20220423
  Serious: Yes (Hospitalization, Other)
  Sender: FDA-Public Use
  Company Number: US-JNJFOC-20190735048

PATIENT
  Age: 69 Year
  Sex: Male

DRUGS (1)
  1. INVOKAMET [Suspect]
     Active Substance: CANAGLIFLOZIN\METFORMIN HYDROCHLORIDE
     Indication: Product used for unknown indication
     Route: 048

REACTIONS (4)
  - Osteomyelitis acute [Unknown]
  - Diabetic foot infection [Unknown]
  - Diabetic foot [Unknown]
  - Toe amputation [Unknown]

NARRATIVE: CASE EVENT DATE: 20180606
